FAERS Safety Report 9306864 (Version 1)
Quarter: 2013Q2

REPORT INFORMATION
  Report Type: Spontaneous
  Country: US (occurrence: US)
  Receive Date: 20130523
  Receipt Date: 20130523
  Transmission Date: 20140414
  Serious: Yes (Hospitalization)
  Sender: FDA-Public Use
  Company Number: PHHY2013US050657

PATIENT
  Age: 78 Year
  Sex: Female

DRUGS (3)
  1. WARFARIN [Suspect]
  2. ACETYLSALICYLIC ACID [Suspect]
  3. MELOXICAM [Concomitant]

REACTIONS (5)
  - Haematoma [Recovered/Resolved]
  - Fatigue [Unknown]
  - Abdominal tenderness [Unknown]
  - Abdominal pain upper [Unknown]
  - Nausea [Unknown]
